FAERS Safety Report 4864803-1 (Version None)
Quarter: 2005Q4

REPORT INFORMATION
  Report Type: 
  Country: None (occurrence: None)
  Receive Date: 20051222
  Receipt Date: 20051005
  Transmission Date: 20060501
  Serious: Yes (Hospitalization, Disabling, Other)
  Sender: FDA-Public Use
  Company Number: US-MERCK-0510USA05328

PATIENT
  Age: 54 Year
  Sex: Female
  Weight: 90 kg

DRUGS (4)
  1. VIOXX [Suspect]
     Indication: ARTHROPATHY
     Route: 048
     Dates: start: 20020422, end: 20040701
  2. VIOXX [Suspect]
     Indication: OSTEOARTHRITIS
     Route: 048
     Dates: start: 20020422, end: 20040701
  3. NORVASC [Concomitant]
     Route: 065
  4. METFORMIN [Concomitant]
     Route: 065

REACTIONS (12)
  - ARTHROPATHY [None]
  - CARDIOVASCULAR DISORDER [None]
  - CONVULSION [None]
  - DEPRESSION [None]
  - MYOCARDIAL INFARCTION [None]
  - MYOCARDIAL ISCHAEMIA [None]
  - NEPHROPATHY [None]
  - OBESITY [None]
  - POSTMENOPAUSAL HAEMORRHAGE [None]
  - RASH [None]
  - RENAL FAILURE CHRONIC [None]
  - VISION BLURRED [None]
